FAERS Safety Report 6866281-X (Version None)
Quarter: 2010Q3

REPORT INFORMATION
  Report Type: 
  Country: None (occurrence: None)
  Receive Date: 20100722
  Receipt Date: 20100713
  Transmission Date: 20110219
  Serious: Yes (Other)
  Sender: FDA-Public Use
  Company Number: US-WYE-H16137510

PATIENT
  Sex: Male

DRUGS (2)
  1. VENLAFAXINE HYDROCHLORIDE [Suspect]
     Indication: MANIA
     Dosage: UNKNOWN DAILY DOSE, HAS BEEN WITHOUT MEDICATION FOR 3 DAYS
     Dates: end: 20100101
  2. VENLAFAXINE HYDROCHLORIDE [Suspect]
     Indication: DEPRESSION

REACTIONS (4)
  - ACTIVITIES OF DAILY LIVING IMPAIRED [None]
  - DRUG WITHDRAWAL SYNDROME [None]
  - NEGATIVE THOUGHTS [None]
  - SUICIDAL IDEATION [None]
